FAERS Safety Report 25263843 (Version 1)
Quarter: 2025Q2

REPORT INFORMATION
  Report Type: Report from Study
  Country: AU (occurrence: AU)
  Receive Date: 20250502
  Receipt Date: 20250502
  Transmission Date: 20250716
  Serious: Yes (Other)
  Sender: TAKEDA
  Company Number: AU-TAKEDA-2025TUS041790

PATIENT
  Age: 69 Year
  Sex: Male

DRUGS (8)
  1. VEDOLIZUMAB [Suspect]
     Active Substance: VEDOLIZUMAB
     Indication: Colitis ulcerative
  2. PRADAXA [Concomitant]
     Active Substance: DABIGATRAN ETEXILATE MESYLATE
  3. MESALAMINE [Concomitant]
     Active Substance: MESALAMINE
  4. SOTALOL [Concomitant]
     Active Substance: SOTALOL
  5. METHOTREXATE [Concomitant]
     Active Substance: METHOTREXATE
  6. FOLIC ACID [Concomitant]
     Active Substance: FOLIC ACID
  7. SIMVASTATIN [Concomitant]
     Active Substance: SIMVASTATIN
  8. PERINDOPRIL [Concomitant]
     Active Substance: PERINDOPRIL

REACTIONS (1)
  - Atrial fibrillation [Recovered/Resolved]

NARRATIVE: CASE EVENT DATE: 20250425
